FAERS Safety Report 18576949 (Version 2)
Quarter: 2021Q3

REPORT INFORMATION
  Report Type: Report from Study
  Country: US (occurrence: US)
  Receive Date: 20201204
  Receipt Date: 20210713
  Transmission Date: 20211014
  Serious: Yes (Hospitalization, Other)
  Sender: FDA-Public Use
  Company Number: US-JNJFOC-20201152378

PATIENT
  Age: 70 Year

DRUGS (20)
  1. CEFALEXIN [Concomitant]
     Active Substance: CEPHALEXIN
     Indication: PRODUCT USED FOR UNKNOWN INDICATION
  2. OTREXUP [Concomitant]
     Active Substance: METHOTREXATE
  3. RESTASIS [Concomitant]
     Active Substance: CYCLOSPORINE
  4. STELARA [Suspect]
     Active Substance: USTEKINUMAB
     Indication: CROHN^S DISEASE
     Route: 058
     Dates: start: 20200722
  5. HYOSCYAMINE. [Concomitant]
     Active Substance: HYOSCYAMINE
     Indication: PRODUCT USED FOR UNKNOWN INDICATION
     Route: 065
  6. TRAMADOL HYDROCHLORIDE. [Concomitant]
     Active Substance: TRAMADOL HYDROCHLORIDE
     Indication: PRODUCT USED FOR UNKNOWN INDICATION
     Route: 065
  7. FOLIC ACID. [Concomitant]
     Active Substance: FOLIC ACID
  8. PREMARIN [Concomitant]
     Active Substance: ESTROGENS, CONJUGATED
  9. STELARA [Suspect]
     Active Substance: USTEKINUMAB
  10. BENTYL [Concomitant]
     Active Substance: DICYCLOMINE HYDROCHLORIDE
  11. METANX [Concomitant]
     Active Substance: LEVOMEFOLATE CALCIUM\METHYLCOBALAMIN\PYRIDOXAL PHOSPHATE ANHYDROUS
  12. HUMIRA [Concomitant]
     Active Substance: ADALIMUMAB
  13. NYSTATIN. [Concomitant]
     Active Substance: NYSTATIN
  14. PROLIN A [Concomitant]
  15. DICYCLOMINE?S [Concomitant]
     Active Substance: DICYCLOMINE HYDROCHLORIDE
     Indication: PRODUCT USED FOR UNKNOWN INDICATION
     Route: 065
  16. CLOBETASOL 0.05% [Concomitant]
     Active Substance: CLOBETASOL
     Indication: PRODUCT USED FOR UNKNOWN INDICATION
     Route: 065
  17. AMBIEN [Concomitant]
     Active Substance: ZOLPIDEM TARTRATE
  18. PREGABALIN. [Concomitant]
     Active Substance: PREGABALIN
  19. DESONIDE. [Concomitant]
     Active Substance: DESONIDE
     Indication: PRODUCT USED FOR UNKNOWN INDICATION
  20. TRAMADOL/APAP [Concomitant]
     Active Substance: ACETAMINOPHEN\TRAMADOL

REACTIONS (2)
  - Crohn^s disease [Not Recovered/Not Resolved]
  - Surgery [Unknown]

NARRATIVE: CASE EVENT DATE: 20200722
